FAERS Safety Report 4350434-9 (Version None)
Quarter: 2004Q2

REPORT INFORMATION
  Report Type: 
  Country: None (occurrence: None)
  Receive Date: 20040427
  Receipt Date: 20040413
  Transmission Date: 20050107
  Serious: Yes (Other)
  Sender: FDA-Public Use
  Company Number: US-JNJFOC-20040200247

PATIENT
  Age: 76 Year
  Sex: Female
  Weight: 82.1011 kg

DRUGS (14)
  1. REMICADE [Suspect]
     Indication: UVEITIS
     Dosage: 5 MG/KG, INTRAVENOUS
     Route: 042
     Dates: start: 20020322
  2. ALPHAGAN [Concomitant]
  3. TIMOPTIC [Concomitant]
  4. FOSOMAX (ALENDRONATE SODIUM) [Concomitant]
  5. ACETYLSALICYLIC ACID SRT [Concomitant]
  6. WARFARIN SODIUM [Concomitant]
  7. SYNTHROID [Concomitant]
  8. FOLIC ACID [Concomitant]
  9. ATENOLOL [Concomitant]
  10. METHOTREXATE [Concomitant]
  11. COSOPT (COSOPT) [Concomitant]
  12. LUMIGAN (BIMTROPOST) [Concomitant]
  13. CALCIUM (CALCIUM) [Concomitant]
  14. VITAMINS (VITAMINS) [Concomitant]

REACTIONS (15)
  - ATHEROSCLEROSIS [None]
  - ATRIAL FIBRILLATION [None]
  - BLOOD GLUCOSE INCREASED [None]
  - BRAIN NATRIURETIC PEPTIDE INCREASED [None]
  - CARDIAC FAILURE CONGESTIVE [None]
  - CARDIOMEGALY [None]
  - DIZZINESS [None]
  - HYPERTHYROIDISM [None]
  - INTERNATIONAL NORMALISED RATIO INCREASED [None]
  - LUNG NEOPLASM [None]
  - LYMPHADENOPATHY [None]
  - MYOGLOBIN BLOOD INCREASED [None]
  - PROTHROMBIN TIME PROLONGED [None]
  - PULMONARY MASS [None]
  - RALES [None]
